FAERS Safety Report 6349711-1 (Version None)
Quarter: 2009Q3

REPORT INFORMATION
  Report Type: 
  Country: None (occurrence: None)
  Receive Date: 20090911
  Receipt Date: 20090901
  Transmission Date: 20100115
  Serious: Yes (Hospitalization)
  Sender: FDA-Public Use
  Company Number: US-ABBOTT-09P-163-0595057-00

PATIENT
  Sex: Male
  Weight: 84.444 kg

DRUGS (8)
  1. HUMIRA [Suspect]
     Indication: RHEUMATOID ARTHRITIS
     Dates: start: 20030507
  2. PRINIVIL [Concomitant]
     Indication: HYPERTENSION
     Dosage: UNKNOWN
  3. VITAMINS [Concomitant]
     Indication: VITAMIN SUPPLEMENTATION
  4. LEUCOVORIN CALCIUM [Concomitant]
     Indication: DRUG USE FOR UNKNOWN INDICATION
     Dosage: UNKNOWN
  5. ALPRAZOLAM [Concomitant]
     Indication: ANXIETY
     Dosage: UNKNOWN
  6. MOBIC [Concomitant]
     Indication: ANTIINFLAMMATORY THERAPY
     Dosage: UNKNOWN
  7. ASPIRIN [Concomitant]
     Indication: DRUG USE FOR UNKNOWN INDICATION
     Dosage: UNKNOWN
  8. HYDROCODONE BITARTRATE [Concomitant]
     Indication: PAIN
     Dosage: UNKNOWN

REACTIONS (3)
  - LUNG DISORDER [None]
  - RESPIRATORY FAILURE [None]
  - STAPHYLOCOCCAL INFECTION [None]
